FAERS Safety Report 7978326-4 (Version None)
Quarter: 2011Q4

REPORT INFORMATION
  Report Type: 
  Country: None (occurrence: None)
  Receive Date: 20111214
  Receipt Date: 20101222
  Transmission Date: 20120403
  Serious: Yes (Other)
  Sender: FDA-Public Use
  Company Number: GB-TEVA-261547ISR

PATIENT
  Age: 77 Year
  Sex: Male

DRUGS (2)
  1. ATORVASTATIN CALCIUM [Suspect]
     Indication: BLOOD CHOLESTEROL INCREASED
     Dosage: 10 MILLIGRAM;
     Dates: start: 20100201
  2. GLICLAZIDE [Suspect]
     Indication: DIABETES MELLITUS
     Dosage: 160 MILLIGRAM;
     Route: 048
     Dates: start: 20100201

REACTIONS (2)
  - BREAST PAIN [None]
  - BREAST ENLARGEMENT [None]
